FAERS Safety Report 8595317-3 (Version None)
Quarter: 2012Q3

REPORT INFORMATION
  Report Type: 
  Country: None (occurrence: None)
  Receive Date: 20120815
  Receipt Date: 20120813
  Transmission Date: 20120928
  Serious: No
  Sender: FDA-Public Use
  Company Number: US-PFIZER INC-2012198476

PATIENT
  Age: 48 Year
  Sex: Female
  Weight: 77.1 kg

DRUGS (3)
  1. PREMARIN [Suspect]
     Dosage: 0.45 MG, DAILY
     Route: 048
     Dates: start: 20120101
  2. LIPITOR [Suspect]
     Indication: BLOOD CHOLESTEROL INCREASED
     Dosage: 10 MG, DAILY
     Route: 048
  3. PREMARIN [Suspect]
     Indication: HYSTERECTOMY
     Dosage: 0.625 MG, DAILY
     Route: 048

REACTIONS (1)
  - URTICARIA [None]
